FAERS Safety Report 9554457 (Version 1)
Quarter: 2013Q3

REPORT INFORMATION
  Report Type: Spontaneous
  Country: TR (occurrence: TR)
  Receive Date: 20130925
  Receipt Date: 20130925
  Transmission Date: 20140515
  Serious: Yes (Hospitalization)
  Sender: FDA-Public Use
  Company Number: TR-B.I. PHARMACEUTICALS,INC./RIDGEFIELD-2013-BI-29563GD

PATIENT
  Age: 3 Year
  Sex: Female

DRUGS (4)
  1. DIPYRIDAMOLE [Suspect]
     Indication: NEPHROTIC SYNDROME
  2. PREDNISOLONE [Suspect]
     Indication: NEPHROTIC SYNDROME
     Route: 048
  3. CYCLOSPORIN A [Suspect]
     Indication: NEPHROTIC SYNDROME
  4. ENALAPRIL [Suspect]
     Indication: NEPHROTIC SYNDROME

REACTIONS (3)
  - Intracardiac thrombus [Recovered/Resolved]
  - Generalised oedema [Recovered/Resolved]
  - Drug ineffective [Unknown]
